FAERS Safety Report 5597955-9 (Version None)
Quarter: 2008Q1

REPORT INFORMATION
  Report Type: 
  Country: None (occurrence: None)
  Receive Date: 20080122
  Receipt Date: 20080111
  Transmission Date: 20080703
  Serious: Yes (Hospitalization)
  Sender: FDA-Public Use
  Company Number: SE-WYE-G00880008

PATIENT
  Sex: Female

DRUGS (3)
  1. EFFEXOR [Suspect]
     Dosage: UNKNOWN
     Dates: start: 20070610
  2. NORMORIX [Suspect]
     Dosage: UNKNOWN
     Dates: end: 20070712
  3. IBUMETIN [Suspect]
     Dosage: UNKNOWN
     Dates: end: 20070712

REACTIONS (4)
  - DYSSTASIA [None]
  - FATIGUE [None]
  - HEADACHE [None]
  - HYPONATRAEMIA [None]
